FAERS Safety Report 8405808-3 (Version None)
Quarter: 2012Q2

REPORT INFORMATION
  Report Type: 
  Country: None (occurrence: None)
  Receive Date: 20120529
  Receipt Date: 20051206
  Transmission Date: 20120825
  Serious: Yes (Hospitalization)
  Sender: FDA-Public Use
  Company Number: 15691-USA-05-3053

PATIENT
  Age: 65 Year
  Sex: Female

DRUGS (10)
  1. ACENOCOUMAROL (ACENOCOUMAROL) [Concomitant]
  2. HYDROCHLOROTHIAZIDE [Concomitant]
  3. FUROSEMIDE [Concomitant]
  4. DIGOXIN [Concomitant]
  5. METFFORMIN HYDROCHLORIDE [Concomitant]
  6. SPIRONOLACTONE [Concomitant]
  7. TOLVAPTAN (TOLVAPTAN(V4.1)) 30MG [Suspect]
     Indication: CARDIAC FAILURE CONGESTIVE
     Dosage: 30 MG, QD, ORAL
     Route: 048
     Dates: start: 20050711
  8. ALPRAZOLAM [Concomitant]
  9. ASPIRIN [Concomitant]
  10. ENALAPRIL MALEATE [Concomitant]

REACTIONS (7)
  - HAEMOGLOBIN DECREASED [None]
  - CONDITION AGGRAVATED [None]
  - CARDIAC FAILURE [None]
  - BLOOD SODIUM INCREASED [None]
  - BRONCHITIS [None]
  - HAEMATOCRIT DECREASED [None]
  - BLOOD GLUCOSE INCREASED [None]
